FAERS Safety Report 25423346 (Version 2)
Quarter: 2025Q2

REPORT INFORMATION
  Report Type: Report from Study
  Country: CO (occurrence: CO)
  Receive Date: 20250611
  Receipt Date: 20250624
  Transmission Date: 20250717
  Serious: Yes (Other)
  Sender: TAKEDA
  Company Number: CO-TAKEDA-2025TUS045615

PATIENT
  Age: 68 Year
  Sex: Female
  Weight: 55 kg

DRUGS (1)
  1. VEDOLIZUMAB [Suspect]
     Active Substance: VEDOLIZUMAB
     Indication: Crohn^s disease

REACTIONS (11)
  - Rheumatoid arthritis [Unknown]
  - Throat irritation [Recovered/Resolved]
  - Alopecia [Unknown]
  - Somnolence [Unknown]
  - Increased appetite [Unknown]
  - Heart rate increased [Recovered/Resolved]
  - Headache [Unknown]
  - Catheter site injury [Unknown]
  - Abdominal pain [Unknown]
  - Fatigue [Unknown]
  - Oropharyngeal pain [Unknown]

NARRATIVE: CASE EVENT DATE: 20250506
